FAERS Safety Report 17081509 (Version 1)
Quarter: 2019Q4

REPORT INFORMATION
  Report Type: Spontaneous
  Country: None (occurrence: US)
  Receive Date: 20191127
  Receipt Date: 20191127
  Transmission Date: 20200122
  Serious: Yes (Hospitalization, Congenital Anomaly)
  Sender: FDA-Public Use
  Company Number: US-BIO PRODUCTS LABORATORY LTD-2077245

PATIENT
  Sex: Female

DRUGS (1)
  1. GAMMAPLEX [Suspect]
     Active Substance: HUMAN IMMUNOGLOBULIN G
     Indication: MYASTHENIA GRAVIS
     Route: 042

REACTIONS (7)
  - Thyroid mass [Unknown]
  - Abortion spontaneous [Unknown]
  - Hysterectomy [Unknown]
  - Off label use [Unknown]
  - Premature baby [Unknown]
  - Headache [Unknown]
  - Mastectomy [Unknown]
